FAERS Safety Report 26124010 (Version 2)
Quarter: 2025Q4

REPORT INFORMATION
  Report Type: Spontaneous
  Country: EU (occurrence: EU)
  Receive Date: 20251205
  Receipt Date: 20251226
  Transmission Date: 20260117
  Serious: Yes (Hospitalization)
  Sender: UNITED THERAPEUTICS
  Company Number: EU-UNITED THERAPEUTICS-UNT-2025-040993

PATIENT

DRUGS (1)
  1. REMODULIN [Suspect]
     Active Substance: TREPROSTINIL
     Indication: Product used for unknown indication
     Dosage: UNK, CONTINUING

REACTIONS (3)
  - Dyspnoea [Unknown]
  - Device delivery system issue [Unknown]
  - Product dispensing issue [Unknown]
